FAERS Safety Report 4811388-1 (Version None)
Quarter: 2005Q4

REPORT INFORMATION
  Report Type: 
  Country: None (occurrence: None)
  Receive Date: 20051026
  Receipt Date: 20051026
  Transmission Date: 20060501
  Serious: Yes (Life-Threatening, Hospitalization, Other)
  Sender: FDA-Public Use
  Company Number: None

PATIENT
  Age: 28 Year
  Sex: Female
  Weight: 56.6996 kg

DRUGS (2)
  1. EFFEXOR [Suspect]
     Indication: DEPRESSION
     Dosage: 27.5 OR 37.5 MG    1 DAILY   PO
     Route: 048
     Dates: start: 20021113, end: 20021203
  2. EFFEXOR [Suspect]
     Indication: DEPRESSION
     Dosage: 27.5 OR 37.5 MG    1 DAILY   PO
     Route: 048
     Dates: start: 20031123, end: 20031216

REACTIONS (3)
  - LEGAL PROBLEM [None]
  - PREGNANCY [None]
  - SUICIDE ATTEMPT [None]
